FAERS Safety Report 9523051 (Version 1)
Quarter: 2013Q3

REPORT INFORMATION
  Report Type: Spontaneous
  Country: US (occurrence: US)
  Receive Date: 20130913
  Receipt Date: 20130913
  Transmission Date: 20140515
  Serious: Yes (Other)
  Sender: FDA-Public Use
  Company Number: CHPA2013US014069

PATIENT
  Age: 68 Year
  Sex: Female

DRUGS (2)
  1. PREVACID 24HR 15MG [Suspect]
     Indication: DYSPEPSIA
     Dosage: 15 MG, BID
     Route: 048
     Dates: start: 20130906, end: 20130909
  2. PREVACID 24HR 15MG [Suspect]
     Dosage: 15 MG, QD
     Route: 048
     Dates: start: 20130910, end: 20130910

REACTIONS (12)
  - Withdrawal syndrome [Not Recovered/Not Resolved]
  - Dysuria [Not Recovered/Not Resolved]
  - Chromaturia [Not Recovered/Not Resolved]
  - Vulvovaginal burning sensation [Not Recovered/Not Resolved]
  - Malaise [Not Recovered/Not Resolved]
  - Insomnia [Not Recovered/Not Resolved]
  - Feeling of body temperature change [Not Recovered/Not Resolved]
  - Tremor [Unknown]
  - Restlessness [Not Recovered/Not Resolved]
  - Nervousness [Unknown]
  - Prescribed overdose [Unknown]
  - Off label use [Unknown]
